FAERS Safety Report 15659086 (Version 2)
Quarter: 2019Q1

REPORT INFORMATION
  Report Type: Spontaneous
  Country: US (occurrence: US)
  Receive Date: 20181127
  Receipt Date: 20190318
  Transmission Date: 20190417
  Serious: Yes (Other)
  Sender: FDA-Public Use
  Company Number: US-SAKK-2018SA318723AA

PATIENT
  Age: 43 Year
  Sex: Female

DRUGS (1)
  1. KEVZARA [Suspect]
     Active Substance: SARILUMAB
     Indication: RHEUMATOID ARTHRITIS
     Dosage: 200 MG, QOW
     Route: 058
     Dates: start: 20180920

REACTIONS (3)
  - Rheumatoid arthritis [Unknown]
  - Insomnia [Unknown]
  - Injection site reaction [Recovering/Resolving]

NARRATIVE: CASE EVENT DATE: 201810
